FAERS Safety Report 19009772 (Version 1)
Quarter: 2021Q1

REPORT INFORMATION
  Report Type: Other
  Country: TR (occurrence: TR)
  Receive Date: 20210316
  Receipt Date: 20210316
  Transmission Date: 20210420
  Serious: Yes (Hospitalization)
  Sender: FDA-Public Use
  Company Number: TR-AJANTA PHARMA USA INC.-2108015

PATIENT
  Age: 31 Year
  Sex: Female

DRUGS (3)
  1. COLCHIUM DISPERT [Concomitant]
  2. IBUPROFEN. [Concomitant]
     Active Substance: IBUPROFEN
  3. LANSOPROZOLE (ANDA 203957) [Suspect]
     Active Substance: LANSOPRAZOLE

REACTIONS (1)
  - Inappropriate antidiuretic hormone secretion [Recovered/Resolved]
